FAERS Safety Report 12199563 (Version 1)
Quarter: 2016Q1

REPORT INFORMATION
  Report Type: Spontaneous
  Country: US (occurrence: US)
  Receive Date: 20160322
  Receipt Date: 20160322
  Transmission Date: 20160526
  Serious: No
  Sender: FDA-Public Use
  Company Number: US-ROXANE LABORATORIES, INC.-2016-RO-00506RO

PATIENT
  Sex: Male

DRUGS (2)
  1. KLONOPIN [Concomitant]
     Active Substance: CLONAZEPAM
     Dosage: 0.5 MG
     Route: 065
  2. QUETIAPINE FUMARATE 25 MG [Suspect]
     Active Substance: QUETIAPINE FUMARATE
     Indication: INSOMNIA
     Dosage: 25 MG
     Route: 065
     Dates: start: 20160303, end: 20160310

REACTIONS (5)
  - Abdominal discomfort [Not Recovered/Not Resolved]
  - Asthenia [Not Recovered/Not Resolved]
  - Headache [Not Recovered/Not Resolved]
  - Dizziness [Not Recovered/Not Resolved]
  - Hot flush [Not Recovered/Not Resolved]

NARRATIVE: CASE EVENT DATE: 20160303
